FAERS Safety Report 7385268-4 (Version None)
Quarter: 2011Q1

REPORT INFORMATION
  Report Type: 
  Country: None (occurrence: None)
  Receive Date: 20110330
  Receipt Date: 20100319
  Transmission Date: 20110831
  Serious: No
  Sender: FDA-Public Use
  Company Number: US-MYLANLABS-2010S1003045

PATIENT
  Age: 31 Year
  Sex: Female

DRUGS (3)
  1. INDERAL [Concomitant]
  2. GABAPENTIN [Concomitant]
  3. EMSAM [Suspect]
     Indication: DEPRESSION
     Dosage: CHANGED QD
     Route: 062
     Dates: start: 20091201, end: 20100223

REACTIONS (3)
  - APPLICATION SITE PRURITUS [None]
  - HYPERSENSITIVITY [None]
  - APPLICATION SITE ERYTHEMA [None]
